FAERS Safety Report 21712518 (Version 1)
Quarter: 2022Q4

REPORT INFORMATION
  Report Type: Spontaneous
  Country: RU (occurrence: None)
  Receive Date: 20221212
  Receipt Date: 20221212
  Transmission Date: 20230113
  Serious: Yes (Other)
  Sender: FDA-Public Use
  Company Number: RU-MICRO LABS LIMITED-ML2022-06080

PATIENT
  Age: 8 Month
  Sex: Male

DRUGS (6)
  1. DIPHENHYDRAMINE HYDROCHLORIDE [Suspect]
     Active Substance: DIPHENHYDRAMINE HYDROCHLORIDE
     Indication: Anaesthetic premedication
     Dosage: 0.1 MG/KG
     Route: 030
  2. MIDAZOLAM [Suspect]
     Active Substance: MIDAZOLAM
     Indication: Anaesthetic premedication
     Dosage: 0.32 MG/KG
     Route: 030
  3. KETAMINE [Suspect]
     Active Substance: KETAMINE
     Indication: Anaesthetic premedication
     Dosage: 1 MG/KG
     Route: 030
  4. SEVOFLURANE [Suspect]
     Active Substance: SEVOFLURANE
     Indication: Induction of anaesthesia
     Dosage: BOLUS ADMINISTRATION OF ENDOTRACHEAL 8% SEVOFLURANE MIXTURE IN OXYGEN OVER 3MIN THROUGH A MASK
  5. ROCURONIUM BROMIDE [Suspect]
     Active Substance: ROCURONIUM BROMIDE
     Indication: Neuromuscular blockade
     Dosage: 0.42 MG/KG
  6. FENTANYL [Suspect]
     Active Substance: FENTANYL
     Indication: Perioperative analgesia
     Dosage: 3.1 ?G/KG

REACTIONS (1)
  - Sinus node dysfunction [Recovering/Resolving]
